FAERS Safety Report 7684181-2 (Version None)
Quarter: 2011Q3

REPORT INFORMATION
  Report Type: 
  Country: None (occurrence: None)
  Receive Date: 20110815
  Receipt Date: 20110805
  Transmission Date: 20111222
  Serious: Yes (Hospitalization, Other)
  Sender: FDA-Public Use
  Company Number: US-BAYER-2010-008077

PATIENT
  Age: 50 Year
  Sex: Female
  Weight: 61 kg

DRUGS (15)
  1. TOPAMAX [Concomitant]
     Dosage: 25 MG, BID
     Route: 048
  2. RELPAX [Concomitant]
     Indication: MIGRAINE
     Dosage: UNK UNK, PRN
     Route: 048
  3. OTHER ANALGESICS AND ANTIPYRETICS [Concomitant]
     Dosage: UNK UNK, PRN
     Route: 048
  4. ZANTAC [Concomitant]
     Dosage: 150 MG, QD
     Route: 048
  5. SPIRONOLACTONE [Concomitant]
     Indication: HYPERTENSION
     Dosage: 25 MG, QD
     Route: 048
     Dates: start: 20040101
  6. YASMIN [Suspect]
     Indication: CONTRACEPTION
     Dosage: UNK UNK, QD
     Route: 048
     Dates: start: 20051011, end: 20071114
  7. AXERT [Concomitant]
     Indication: MIGRAINE
     Dosage: UNK
     Route: 048
     Dates: start: 20060101
  8. TRIAMTERENE AND HYDROCHLOROTHIAZIDE [Concomitant]
     Indication: HYPERTENSION
     Dosage: UNK
     Route: 048
     Dates: start: 20040101
  9. YAZ [Suspect]
     Indication: PREMENSTRUAL SYNDROME
  10. ADVIL LIQUI-GELS [Concomitant]
     Dosage: UNK UNK, PRN
     Route: 048
  11. YAZ [Suspect]
     Indication: CONTRACEPTION
     Dosage: UNK UNK, QD
     Route: 048
     Dates: start: 20051011, end: 20071114
  12. YASMIN [Suspect]
     Indication: PREMENSTRUAL SYNDROME
  13. COVERA-HS [Concomitant]
     Indication: HYPERTENSION
     Dosage: 80 MG, UNK
     Route: 048
     Dates: start: 20040101
  14. BENADRYL [Concomitant]
     Dosage: 50 MG, PRN
     Route: 048
  15. SPIRONOLACTONE AND HYDROCHLOROTHIAZIDE [Concomitant]
     Dosage: 25 MG, QD

REACTIONS (3)
  - FEAR OF DISEASE [None]
  - DEEP VEIN THROMBOSIS [None]
  - PAIN [None]
